FAERS Safety Report 4785887-5 (Version None)
Quarter: 2005Q4

REPORT INFORMATION
  Report Type: 
  Country: None (occurrence: None)
  Receive Date: 20051003
  Receipt Date: 20050829
  Transmission Date: 20060501
  Serious: Yes (Hospitalization)
  Sender: FDA-Public Use
  Company Number: PHHO2005SE13512

PATIENT
  Age: 56 Year
  Sex: Female
  Weight: 41 kg

DRUGS (2)
  1. SANDIMMUNE [Suspect]
     Indication: HEART TRANSPLANT
  2. DICLOFENAC [Suspect]
     Route: 048
     Dates: start: 20050601, end: 20050709

REACTIONS (5)
  - BACK PAIN [None]
  - BLOOD CREATININE INCREASED [None]
  - DISEASE PROGRESSION [None]
  - OSTEOPOROTIC FRACTURE [None]
  - SPINAL COMPRESSION FRACTURE [None]
